FAERS Safety Report 6091727-7 (Version None)
Quarter: 2009Q1

REPORT INFORMATION
  Report Type: 
  Country: None (occurrence: None)
  Receive Date: 20090225
  Receipt Date: 20080505
  Transmission Date: 20090719
  Serious: No
  Sender: FDA-Public Use
  Company Number: A0725358A

PATIENT
  Sex: Female

DRUGS (2)
  1. VALTREX [Suspect]
     Indication: GENITAL HERPES
     Dates: start: 20060701, end: 20061101
  2. VITAMIN TAB [Concomitant]

REACTIONS (2)
  - ABNORMAL LABOUR AFFECTING FOETUS [None]
  - DRUG EXPOSURE DURING PREGNANCY [None]
